FAERS Safety Report 15663379 (Version 1)
Quarter: 2018Q4

REPORT INFORMATION
  Report Type: Spontaneous
  Country: TH (occurrence: TH)
  Receive Date: 20181128
  Receipt Date: 20181128
  Transmission Date: 20190205
  Serious: Yes (Hospitalization, Disabling, Other)
  Sender: FDA-Public Use
  Company Number: TH-ROCHE-2216652

PATIENT
  Age: 22 Year
  Sex: Female

DRUGS (1)
  1. HERCEPTIN [Suspect]
     Active Substance: TRASTUZUMAB
     Indication: BREAST CANCER
     Route: 065

REACTIONS (13)
  - Muscle twitching [Unknown]
  - Dyspnoea [Unknown]
  - Deformity [Unknown]
  - Hypoacusis [Unknown]
  - Slow speech [Unknown]
  - Metastases to central nervous system [Unknown]
  - Mobility decreased [Recovering/Resolving]
  - Musculoskeletal stiffness [Unknown]
  - Muscle spasms [Unknown]
  - Hypoaesthesia [Unknown]
  - Asthenia [Unknown]
  - Eye pain [Unknown]
  - Sensory loss [Recovering/Resolving]
